FAERS Safety Report 7328063-4 (Version None)
Quarter: 2011Q1

REPORT INFORMATION
  Report Type: 
  Country: None (occurrence: None)
  Receive Date: 20110224
  Receipt Date: 20110224
  Transmission Date: 20110831
  Serious: Yes (Other)
  Sender: FDA-Public Use
  Company Number: None

PATIENT
  Sex: Female
  Weight: 61.2356 kg

DRUGS (2)
  1. VENLAFAXINE [Suspect]
     Indication: ANXIETY
     Dosage: 75MG DAILY
     Dates: start: 20100701, end: 20101001
  2. VENLAFAXINE [Suspect]
     Indication: DEPRESSION
     Dosage: 75MG DAILY
     Dates: start: 20100701, end: 20101001

REACTIONS (2)
  - PRODUCT SUBSTITUTION ISSUE [None]
  - MIGRAINE [None]
